FAERS Safety Report 6179208-3 (Version None)
Quarter: 2009Q2

REPORT INFORMATION
  Report Type: 
  Country: None (occurrence: None)
  Receive Date: 20090505
  Receipt Date: 20090428
  Transmission Date: 20091009
  Serious: Yes (Hospitalization, Other)
  Sender: FDA-Public Use
  Company Number: US-ASTRAZENECA-2009UW10616

PATIENT
  Age: 51 Year
  Sex: Female
  Weight: 66.7 kg

DRUGS (22)
  1. NEXIUM [Suspect]
     Indication: GASTROOESOPHAGEAL REFLUX DISEASE
     Route: 048
     Dates: start: 20030101
  2. NEXIUM [Suspect]
     Indication: HIATUS HERNIA
     Route: 048
     Dates: start: 20030101
  3. ZYRTEC [Concomitant]
  4. ZANAFLEX [Concomitant]
  5. ATARAX [Concomitant]
  6. CHANTIX [Concomitant]
  7. DONNATAL [Concomitant]
  8. MORPHINE [Concomitant]
  9. PROBIOTIC [Concomitant]
  10. HYDROCORTISONE [Concomitant]
  11. SOMA [Concomitant]
  12. METHADONE [Concomitant]
  13. COUMADIN [Concomitant]
  14. PREDNISONE [Concomitant]
  15. ATIVAN [Concomitant]
  16. LYRICA [Concomitant]
  17. ACYCLOVIR [Concomitant]
  18. AMITRIPTLINE HYDROCHLORIDE TAB [Concomitant]
  19. PROVIGIL [Concomitant]
  20. LASIX [Concomitant]
  21. KLOR-CON [Concomitant]
  22. CLARITIN [Concomitant]

REACTIONS (6)
  - DEEP VEIN THROMBOSIS [None]
  - EMBOLISM [None]
  - LUNG NEOPLASM MALIGNANT [None]
  - PEMPHIGOID [None]
  - STEVENS-JOHNSON SYNDROME [None]
  - WEIGHT INCREASED [None]
